FAERS Safety Report 6839519-2 (Version None)
Quarter: 2010Q3

REPORT INFORMATION
  Report Type: 
  Country: None (occurrence: None)
  Receive Date: 20100714
  Receipt Date: 20091222
  Transmission Date: 20110219
  Serious: No
  Sender: FDA-Public Use
  Company Number: A0822125A

PATIENT
  Age: 48 Year
  Sex: Female
  Weight: 62.7 kg

DRUGS (4)
  1. FLOVENT [Suspect]
     Indication: ASTHMA
     Dosage: 1PUFF TWICE PER DAY
     Route: 055
     Dates: start: 20091110, end: 20091116
  2. ESTROGEN [Concomitant]
  3. MEDROL [Concomitant]
     Indication: BRONCHITIS
  4. CEFTIN [Concomitant]
     Dosage: 250U TWICE PER DAY

REACTIONS (5)
  - DYSPHONIA [None]
  - FEELING JITTERY [None]
  - HEADACHE [None]
  - INSOMNIA [None]
  - OROPHARYNGEAL PAIN [None]
